FAERS Safety Report 4686667-1 (Version None)
Quarter: 2005Q2

REPORT INFORMATION
  Report Type: 
  Country: None (occurrence: None)
  Receive Date: 20050609
  Receipt Date: 20050228
  Transmission Date: 20051028
  Serious: Yes (Hospitalization)
  Sender: FDA-Public Use
  Company Number: 2005SE01249

PATIENT
  Age: 24772 Day
  Sex: Male

DRUGS (20)
  1. ROSUVASTATIN [Suspect]
     Indication: RENAL FAILURE CHRONIC
     Route: 048
     Dates: start: 20040505, end: 20041107
  2. FUROSEMIDE [Suspect]
     Indication: FLUID RETENTION
     Dosage: 500 MG
     Route: 048
     Dates: end: 20041108
  3. AMINESS [Concomitant]
     Indication: PROPHYLAXIS
     Route: 048
     Dates: start: 20040119
  4. ORALOVITE [Concomitant]
     Indication: PROPHYLAXIS
     Route: 048
     Dates: start: 20040119
  5. FOLACIN [Concomitant]
     Indication: FOLATE DEFICIENCY
     Route: 048
     Dates: start: 20040119
  6. ENALAPRIL MALEATE [Concomitant]
     Indication: HYPERTENSION
     Route: 048
  7. ASPIRIN [Concomitant]
     Indication: THROMBOSIS PROPHYLAXIS
     Route: 048
  8. PERSANTIN [Concomitant]
     Indication: THROMBOSIS PROPHYLAXIS
     Route: 048
  9. FUROSEMIDE [Concomitant]
     Route: 048
  10. PLENDIL [Concomitant]
     Indication: HYPERTENSION
     Route: 048
  11. ETALPHA [Concomitant]
     Indication: PROPHYLAXIS
     Route: 048
  12. EMLA [Concomitant]
     Indication: PAIN PROPHYLAXIS
     Route: 061
     Dates: start: 20040119
  13. RENAGEL [Concomitant]
     Indication: HYPERPHOSPHATAEMIA
     Route: 048
  14. RESONIUM [Concomitant]
     Indication: PROPHYLAXIS
     Route: 048
     Dates: start: 20040119
  15. VOLTAREN [Concomitant]
     Indication: PAIN PROPHYLAXIS
     Route: 048
  16. VENOFER [Concomitant]
     Indication: NEPHROGENIC ANAEMIA
     Route: 042
     Dates: start: 20040119
  17. INNOHEP [Concomitant]
     Indication: THROMBOSIS PROPHYLAXIS
     Route: 042
     Dates: start: 20040119
  18. ARANESP [Concomitant]
     Indication: NEPHROGENIC ANAEMIA
     Route: 042
     Dates: start: 20040119
  19. IMOVANE [Concomitant]
     Indication: PROPHYLAXIS
     Route: 048
     Dates: start: 20040518
  20. LACTULOS [Concomitant]
     Indication: CONSTIPATION
     Route: 048
     Dates: start: 20040623, end: 20041213

REACTIONS (1)
  - CUTANEOUS LUPUS ERYTHEMATOSUS [None]
